FAERS Safety Report 4579486-8 (Version None)
Quarter: 2005Q1

REPORT INFORMATION
  Report Type: 
  Country: None (occurrence: None)
  Receive Date: 20050209
  Receipt Date: 20030402
  Transmission Date: 20050727
  Serious: Yes (Hospitalization)
  Sender: FDA-Public Use
  Company Number: 05-026

PATIENT
  Age: 73 Year
  Sex: Male

DRUGS (6)
  1. CAPOTEN [Suspect]
     Dosage: 25 MG, QD, ORAL
     Route: 048
  2. AMIODARONE HCL [Concomitant]
  3. FUROSEMIDE [Concomitant]
  4. ALLOPURINOL [Concomitant]
  5. ACENOCOUMAROL [Concomitant]
  6. TINZAPARIN SODIUM [Concomitant]

REACTIONS (3)
  - GAIT DISTURBANCE [None]
  - MUSCLE CONTRACTIONS INVOLUNTARY [None]
  - TREMOR [None]
